FAERS Safety Report 6632415-5 (Version None)
Quarter: 2010Q1

REPORT INFORMATION
  Report Type: 
  Country: None (occurrence: None)
  Receive Date: 20100312
  Receipt Date: 20090923
  Transmission Date: 20100710
  Serious: No
  Sender: FDA-Public Use
  Company Number: 2007BI020112

PATIENT
  Age: 32 Year
  Sex: Female

DRUGS (4)
  1. AVONEX [Suspect]
     Indication: MULTIPLE SCLEROSIS
     Route: 030
     Dates: start: 20010501, end: 20030101
  2. AVONEX [Suspect]
     Route: 030
     Dates: start: 20030101, end: 20040501
  3. AVONEX [Suspect]
     Route: 030
     Dates: start: 20050201, end: 20050301
  4. AVONEX [Suspect]
     Route: 030
     Dates: start: 20050101, end: 20080101

REACTIONS (1)
  - GESTATIONAL DIABETES [None]
